FAERS Safety Report 6969426-6 (Version None)
Quarter: 2010Q3

REPORT INFORMATION
  Report Type: 
  Country: None (occurrence: None)
  Receive Date: 20100907
  Receipt Date: 20100901
  Transmission Date: 20110219
  Serious: Yes (Death)
  Sender: FDA-Public Use
  Company Number: US-GILEAD-2010-0031430

PATIENT
  Sex: Female

DRUGS (18)
  1. LETAIRIS [Suspect]
     Indication: PULMONARY ARTERIAL HYPERTENSION
     Route: 048
     Dates: start: 20071216, end: 20100829
  2. FUROSEMIDE [Concomitant]
  3. FLUTICASONE/SALMETEROL [Concomitant]
  4. REQUIP [Concomitant]
  5. FERRETTS [Concomitant]
  6. NOVOLOG [Concomitant]
  7. INSULIN GLARGINE [Concomitant]
  8. MIRALAX [Concomitant]
  9. CITALOPRAM HYDROBROMIDE [Concomitant]
  10. MOBIC [Concomitant]
  11. LISINOPRIL [Concomitant]
  12. PHENERGAN [Concomitant]
  13. NORPRAMIN [Concomitant]
  14. PERCOCET [Concomitant]
  15. MORPHINE [Concomitant]
  16. OMEPRAZOLE [Concomitant]
  17. AMBIEN [Concomitant]
  18. ATIVAN [Concomitant]

REACTIONS (1)
  - CARDIAC ARREST [None]
